FAERS Safety Report 20126599 (Version 2)
Quarter: 2021Q4

REPORT INFORMATION
  Report Type: Spontaneous
  Country: CN (occurrence: CN)
  Receive Date: 20211129
  Receipt Date: 20211202
  Transmission Date: 20220303
  Serious: Yes (Hospitalization)
  Sender: FDA-Public Use
  Company Number: CN-BoehringerIngelheim-2021-BI-139832

PATIENT
  Age: 82 Year
  Sex: Female
  Weight: 55 kg

DRUGS (2)
  1. PRADAXA [Suspect]
     Active Substance: DABIGATRAN ETEXILATE MESYLATE
     Indication: Atrial fibrillation
     Dosage: ROUTE OF ADMIN? BROKE THE PRADAXA CAPSULES AND INJECTED THROUGH THE GASTROSTOMY TUBE.
     Route: 048
     Dates: start: 2019
  2. PRADAXA [Suspect]
     Active Substance: DABIGATRAN ETEXILATE MESYLATE
     Dosage: ROUTE OF ADMIN? BROKE THE PRADAXA CAPSULES AND INJECTED THROUGH THE GASTROSTOMY TUBE.
     Dates: start: 202111

REACTIONS (6)
  - Dysphagia [Recovering/Resolving]
  - Dysphagia [Unknown]
  - Oral discomfort [Unknown]
  - Tongue discolouration [Recovered/Resolved]
  - Off label use [Unknown]
  - Therapeutic response unexpected [Unknown]

NARRATIVE: CASE EVENT DATE: 20190101
